FAERS Safety Report 7501896-7 (Version None)
Quarter: 2011Q2

REPORT INFORMATION
  Report Type: 
  Country: None (occurrence: None)
  Receive Date: 20110523
  Receipt Date: 20110523
  Transmission Date: 20111010
  Serious: Yes (Other)
  Sender: FDA-Public Use
  Company Number: None

PATIENT
  Age: 73 Year
  Sex: Female
  Weight: 86.1834 kg

DRUGS (2)
  1. COLCRYS [Suspect]
     Dosage: 1 PER DAY
     Dates: start: 20110423
  2. COLCRYS [Suspect]
     Dosage: 1 PER DAY
     Dates: start: 20110425

REACTIONS (1)
  - OEDEMA PERIPHERAL [None]
